FAERS Safety Report 8882788 (Version 2)
Quarter: 2019Q3

REPORT INFORMATION
  Report Type: Spontaneous
  Country: US (occurrence: US)
  Receive Date: 20121102
  Receipt Date: 20190816
  Transmission Date: 20191005
  Serious: No
  Sender: FDA-Public Use
  Company Number: US-ASTRAZENECA-2011SE66851

PATIENT

DRUGS (2)
  1. BYDUREON [Suspect]
     Active Substance: EXENATIDE
     Route: 065
  2. CRESTOR [Suspect]
     Active Substance: ROSUVASTATIN CALCIUM
     Route: 048

REACTIONS (4)
  - Device issue [Unknown]
  - Malaise [Unknown]
  - Product dose omission [Unknown]
  - Wrong technique in device usage process [Unknown]
